FAERS Safety Report 4424697-5 (Version None)
Quarter: 2004Q3

REPORT INFORMATION
  Report Type: 
  Country: None (occurrence: None)
  Receive Date: 20040809
  Receipt Date: 20040723
  Transmission Date: 20050211
  Serious: No
  Sender: FDA-Public Use
  Company Number: 2004UW15689

PATIENT
  Age: 16 Year
  Sex: 0

DRUGS (1)
  1. LOSEC [Suspect]

REACTIONS (1)
  - GASTROINTESTINAL HAEMORRHAGE [None]
